FAERS Safety Report 20098789 (Version 1)
Quarter: 2021Q4

REPORT INFORMATION
  Report Type: Spontaneous
  Country: US (occurrence: US)
  Receive Date: 20211122
  Receipt Date: 20211122
  Transmission Date: 20220303
  Serious: Yes (Other)
  Sender: FDA-Public Use
  Company Number: US-BAYER-2021A251302

PATIENT
  Age: 54 Year
  Sex: Female

DRUGS (7)
  1. ASPIRIN [Interacting]
     Active Substance: ASPIRIN
  2. APIXABAN [Interacting]
     Active Substance: APIXABAN
  3. LEVETIRACETAM [Concomitant]
     Active Substance: LEVETIRACETAM
  4. OXYCODONE [Concomitant]
     Active Substance: OXYCODONE
  5. ATORVASTATIN [Concomitant]
     Active Substance: ATORVASTATIN
  6. MIDODRINE [Concomitant]
     Active Substance: MIDODRINE
  7. FERROUS SULFATE [Concomitant]
     Active Substance: FERROUS SULFATE

REACTIONS (2)
  - Subarachnoid haemorrhage [None]
  - Labelled drug-drug interaction medication error [None]
